FAERS Safety Report 7069788-8 (Version None)
Quarter: 2010Q4

REPORT INFORMATION
  Report Type: 
  Country: None (occurrence: None)
  Receive Date: 20101028
  Receipt Date: 20100607
  Transmission Date: 20110411
  Serious: No
  Sender: FDA-Public Use
  Company Number: US-WYE-H15678610

PATIENT
  Age: 82 Year
  Sex: Male
  Weight: 99.88 kg

DRUGS (4)
  1. ADVIL [Suspect]
     Indication: ANALGESIC THERAPY
     Dosage: 2 TABLETS AS NEEDED
     Route: 048
     Dates: start: 20100301, end: 20100605
  2. ZOCOR [Concomitant]
  3. LISINOPRIL [Concomitant]
  4. TERAZOSIN HCL [Concomitant]

REACTIONS (1)
  - EPISTAXIS [None]
